FAERS Safety Report 7668436-3 (Version None)
Quarter: 2011Q3

REPORT INFORMATION
  Report Type: 
  Country: None (occurrence: None)
  Receive Date: 20110808
  Receipt Date: 20110727
  Transmission Date: 20111222
  Serious: Yes (Hospitalization, Other)
  Sender: FDA-Public Use
  Company Number: US-BAYER-2011-003021

PATIENT
  Age: 68 Year
  Sex: Male

DRUGS (15)
  1. ERGOCALCIFEROL [Concomitant]
     Dosage: 50000 U, WEEKLY
  2. ASPIRIN [Concomitant]
     Dosage: DAILY DOSE 81 MG
     Route: 048
  3. METHOCARBAMOL [Concomitant]
     Dosage: 500 MG, TID
     Route: 048
  4. CREON [Concomitant]
     Dosage: DAILY DOSE 20 MG
  5. LOVASTATIN [Concomitant]
     Dosage: 20 MG, QD
     Route: 048
  6. SORAFENIB (RAF KINASE INHIBITOR) [Suspect]
     Indication: HEPATIC NEOPLASM MALIGNANT
     Dosage: 400 MG, BID
     Route: 048
     Dates: start: 20100917, end: 20101020
  7. SORAFENIB (RAF KINASE INHIBITOR) [Suspect]
     Dosage: 400 MG, BID
     Dates: start: 20101026
  8. VIAGRA [Concomitant]
  9. HYDROCHLOROTHIAZID [Concomitant]
     Dosage: 25 MG, QD
     Route: 048
  10. OXYCONTIN [Concomitant]
     Dosage: DAILY DOSE 10 MG
     Route: 048
  11. ADDITIONAL STUDY MEDICATION [Suspect]
     Dosage: 0.1 MG, ONCE
     Route: 013
     Dates: start: 20101105, end: 20101105
  12. ACTOS [Concomitant]
     Dosage: 15 MG, BID
     Route: 048
  13. LISINOPRIL [Concomitant]
     Dosage: 10 MG, QD
     Route: 048
  14. ADDITIONAL STUDY MEDICATION [Suspect]
     Dosage: 0.1 MG, ONCE
     Route: 013
     Dates: start: 20100924, end: 20100924
  15. NEURONTIN [Concomitant]
     Dosage: 600 MG, TID
     Route: 048

REACTIONS (4)
  - NODULE [None]
  - ABDOMINAL PAIN UPPER [None]
  - ARRHYTHMIA SUPRAVENTRICULAR [None]
  - CHEST PAIN [None]
